FAERS Safety Report 7943079-2 (Version None)
Quarter: 2011Q4

REPORT INFORMATION
  Report Type: 
  Country: None (occurrence: None)
  Receive Date: 20111128
  Receipt Date: 20111116
  Transmission Date: 20120403
  Serious: Yes (Death)
  Sender: FDA-Public Use
  Company Number: US-CUBIST-2011S1000806

PATIENT
  Sex: Male

DRUGS (3)
  1. CUBICIN [Suspect]
     Indication: BACTERAEMIA
  2. ALL OTHER THERAPEUTIC PRODUCTS [Suspect]
     Indication: PRODUCT USED FOR UNKNOWN INDICATION
  3. VANCOMYCIN [Concomitant]
     Indication: PRODUCT USED FOR UNKNOWN INDICATION

REACTIONS (2)
  - RENAL FAILURE [None]
  - ANTIMICROBIAL SUSCEPTIBILITY TEST RESISTANT [None]
